FAERS Safety Report 12287656 (Version 1)
Quarter: 2016Q2

REPORT INFORMATION
  Report Type: Spontaneous
  Country: CA (occurrence: CA)
  Receive Date: 20160420
  Receipt Date: 20160420
  Transmission Date: 20160815
  Serious: Yes (Other)
  Sender: FDA-Public Use
  Company Number: CA-TEVA-585137ACC

PATIENT
  Age: 67 Year
  Sex: Male

DRUGS (1)
  1. RATIO-TAMSULOSIN [Suspect]
     Active Substance: TAMSULOSIN
     Indication: BENIGN PROSTATIC HYPERPLASIA
     Dosage: .4 MILLIGRAM DAILY;
     Route: 048

REACTIONS (4)
  - Urinary retention [Recovered/Resolved]
  - Nocturia [Recovered/Resolved]
  - Product substitution issue [Recovered/Resolved]
  - Benign prostatic hyperplasia [Recovered/Resolved]
